FAERS Safety Report 6983486-8 (Version None)
Quarter: 2010Q3

REPORT INFORMATION
  Report Type: 
  Country: None (occurrence: None)
  Receive Date: 20100914
  Receipt Date: 20080827
  Transmission Date: 20110219
  Serious: Yes (Hospitalization, Other)
  Sender: FDA-Public Use
  Company Number: US-WYE-H04752208

PATIENT
  Age: 71 Year
  Sex: Female
  Weight: 162.99 kg

DRUGS (15)
  1. TYGACIL [Suspect]
     Indication: COLITIS
     Route: 042
     Dates: start: 20080501, end: 20080508
  2. BUMEX [Concomitant]
     Dosage: UNKNOWN
     Route: 042
     Dates: start: 20080502, end: 20080505
  3. ALPRAZOLAM [Concomitant]
     Indication: ANXIETY
     Dosage: 0.25 MG Q6HR PRN
     Route: 048
     Dates: start: 20080502, end: 20080508
  4. DIGOXIN [Concomitant]
     Route: 065
     Dates: start: 20080501, end: 20080613
  5. LOVENOX [Concomitant]
     Route: 058
     Dates: start: 20080501, end: 20080530
  6. LEXAPRO [Concomitant]
     Route: 048
     Dates: start: 20080502, end: 20080508
  7. FENTANYL CITRATE [Concomitant]
     Dosage: 25 MCG PATCH-Q3DAYS
     Dates: start: 20080501, end: 20080509
  8. FUROSEMIDE [Concomitant]
     Route: 042
     Dates: start: 20080501, end: 20080508
  9. GLIPIZIDE [Concomitant]
     Route: 048
     Dates: start: 20080501, end: 20080508
  10. LEVOTHYROXINE [Concomitant]
     Route: 065
     Dates: start: 20080501, end: 20080613
  11. METOPROLOL TARTRATE [Concomitant]
     Route: 048
  12. PROTONIX [Concomitant]
     Route: 048
     Dates: start: 20080501, end: 20080508
  13. SPIRONOLACTONE [Concomitant]
     Route: 048
     Dates: start: 20080502, end: 20080508
  14. METRONIDAZOLE [Concomitant]
     Route: 048
     Dates: start: 20080501, end: 20080505
  15. NOVOLOG [Concomitant]
     Indication: DIABETES MELLITUS
     Dosage: SLIDING SCALE
     Route: 058
     Dates: start: 20080502, end: 20080515

REACTIONS (1)
  - PANCREATITIS [None]
